FAERS Safety Report 5686740-5 (Version None)
Quarter: 2008Q1

REPORT INFORMATION
  Report Type: 
  Country: None (occurrence: None)
  Receive Date: 20080328
  Receipt Date: 20070529
  Transmission Date: 20080703
  Serious: No
  Sender: FDA-Public Use
  Company Number: US-BAYER-US-2007-019785

PATIENT
  Sex: Female
  Weight: 77 kg

DRUGS (3)
  1. MIRENA [Suspect]
     Indication: CONTRACEPTION
     Route: 015
     Dates: start: 20000101
  2. ANTIFUNGALS [Concomitant]
     Route: 048
  3. NO CONCOMITANT MEDICATION [Concomitant]

REACTIONS (2)
  - AMENORRHOEA [None]
  - METRORRHAGIA [None]
